FAERS Safety Report 9054641 (Version 1)
Quarter: 2013Q1

REPORT INFORMATION
  Report Type: Spontaneous
  Country: US (occurrence: US)
  Receive Date: 20130208
  Receipt Date: 20130208
  Transmission Date: 20140127
  Serious: Yes (Disabling, Other)
  Sender: FDA-Public Use
  Company Number: US-JNJFOC-20130116592

PATIENT
  Sex: Female

DRUGS (1)
  1. REMICADE [Suspect]
     Indication: CROHN^S DISEASE
     Dosage: TOTAL NUMBER OF INFUSIONS RECEIVED UNTILL THE TIME OF THE REPORT: 103 INFUSIONS
     Route: 042

REACTIONS (7)
  - Disability [Unknown]
  - Ocular hyperaemia [Unknown]
  - Joint swelling [Unknown]
  - Spinal pain [Unknown]
  - Paraesthesia [Unknown]
  - Arthralgia [Unknown]
  - Swelling [Unknown]
